FAERS Safety Report 6044650-8 (Version None)
Quarter: 2009Q1

REPORT INFORMATION
  Report Type: 
  Country: None (occurrence: None)
  Receive Date: 20090120
  Receipt Date: 20090108
  Transmission Date: 20090719
  Serious: Yes (Other)
  Sender: FDA-Public Use
  Company Number: AU-PFIZER INC-2009154143

PATIENT

DRUGS (1)
  1. ZOLOFT [Suspect]

REACTIONS (10)
  - CONSTIPATION [None]
  - FACIAL BONES FRACTURE [None]
  - FALL [None]
  - INSOMNIA [None]
  - JOINT SWELLING [None]
  - OEDEMA PERIPHERAL [None]
  - PARKINSON'S DISEASE [None]
  - SLEEP TALKING [None]
  - UNEVALUABLE EVENT [None]
  - VISUAL IMPAIRMENT [None]
